FAERS Safety Report 6078527-9 (Version None)
Quarter: 2009Q1

REPORT INFORMATION
  Report Type: 
  Country: None (occurrence: None)
  Receive Date: 20090211
  Receipt Date: 20090211
  Transmission Date: 20090719
  Serious: Yes (Other)
  Sender: FDA-Public Use
  Company Number: None

PATIENT
  Age: 23 Year
  Sex: Female
  Weight: 72.5755 kg

DRUGS (1)
  1. MIRENA [Suspect]
     Indication: CONTRACEPTION
     Dosage: 1/EA 5 YEARS INTRA-UTERINE
     Route: 015
     Dates: start: 20060301, end: 20070128

REACTIONS (1)
  - WEIGHT INCREASED [None]
